FAERS Safety Report 19959944 (Version 1)
Quarter: 2021Q4

REPORT INFORMATION
  Report Type: Spontaneous
  Country: US (occurrence: US)
  Receive Date: 20211015
  Receipt Date: 20211015
  Transmission Date: 20220303
  Serious: No
  Sender: FDA-Public Use
  Company Number: US-LUNDBECK-DKLU3039697

PATIENT
  Age: 21 Year
  Sex: Female

DRUGS (1)
  1. SABRIL [Suspect]
     Active Substance: VIGABATRIN
     Indication: Tuberous sclerosis complex
     Route: 048
     Dates: start: 201405

REACTIONS (1)
  - Prescribed overdose [Unknown]
